FAERS Safety Report 7418965-2 (Version None)
Quarter: 2011Q2

REPORT INFORMATION
  Report Type: 
  Country: None (occurrence: None)
  Receive Date: 20110415
  Receipt Date: 20110403
  Transmission Date: 20111010
  Serious: Yes (Hospitalization)
  Sender: FDA-Public Use
  Company Number: US-BAYER-2010-004366

PATIENT
  Age: 25 Year
  Sex: Female
  Weight: 61 kg

DRUGS (2)
  1. YAZ [Suspect]
     Indication: PRODUCT USED FOR UNKNOWN INDICATION
     Dosage: 1 TAB/DAY
     Route: 048
     Dates: start: 20080901, end: 20100101
  2. YASMIN [Suspect]
     Indication: PRODUCT USED FOR UNKNOWN INDICATION
     Dosage: 1 TAB/DAY
     Route: 048
     Dates: start: 20080901, end: 20100101

REACTIONS (3)
  - INJURY [None]
  - DEEP VEIN THROMBOSIS [None]
  - PAIN [None]
